FAERS Safety Report 7151566-2 (Version None)
Quarter: 2010Q4

REPORT INFORMATION
  Report Type: 
  Country: None (occurrence: None)
  Receive Date: 20101210
  Receipt Date: 20101201
  Transmission Date: 20110411
  Serious: Yes (Other)
  Sender: FDA-Public Use
  Company Number: US-JNJCH-2010027714

PATIENT
  Age: 85 Year
  Sex: Female
  Weight: 62.1 kg

DRUGS (5)
  1. BENADRYL [Suspect]
     Indication: SLEEP DISORDER
     Dosage: TEXT:ONE TABLET PER DAY
     Route: 048
     Dates: start: 20091201, end: 20101130
  2. AMLODIPINE BESYLATE [Suspect]
     Indication: BLOOD PRESSURE
     Dosage: TEXT:5MG ONE TABLET TWICE A DAY
     Route: 048
  3. CARVEDILOL [Suspect]
     Indication: BLOOD PRESSURE
     Dosage: TEXT:6.25MG ONCE DAILY
     Route: 065
  4. MICARDIS [Suspect]
     Indication: PRODUCT USED FOR UNKNOWN INDICATION
     Dosage: TEXT:80MG ONCE DAILY
     Route: 065
  5. ACETYLSALICYLIC ACID [Concomitant]
     Indication: PRODUCT USED FOR UNKNOWN INDICATION
     Dosage: TEXT:81MG ONCE DAILY
     Route: 065

REACTIONS (3)
  - OFF LABEL USE [None]
  - SYNCOPE [None]
  - WRONG TECHNIQUE IN DRUG USAGE PROCESS [None]
